FAERS Safety Report 19004023 (Version 1)
Quarter: 2021Q1

REPORT INFORMATION
  Report Type: Report from Study
  Country: None (occurrence: ES)
  Receive Date: 20210312
  Receipt Date: 20210312
  Transmission Date: 20210420
  Serious: Yes (Death)
  Sender: FDA-Public Use
  Company Number: ES-ABBVIE-21P-144-3810128-00

PATIENT

DRUGS (1)
  1. GLECAPREVIR/PIBRENTASVIR [Suspect]
     Active Substance: GLECAPREVIR\PIBRENTASVIR
     Indication: HEPATIC CIRRHOSIS
     Route: 048

REACTIONS (1)
  - Pancreatic carcinoma [Fatal]
